FAERS Safety Report 5821136-4 (Version None)
Quarter: 2008Q3

REPORT INFORMATION
  Report Type: 
  Country: None (occurrence: None)
  Receive Date: 20080724
  Receipt Date: 20080215
  Transmission Date: 20090109
  Serious: No
  Sender: FDA-Public Use
  Company Number: US-BAYER-200810750BCC

PATIENT
  Age: 93 Year
  Sex: Female
  Weight: 54 kg

DRUGS (7)
  1. ALEVE [Suspect]
     Indication: ARTHRALGIA
     Dosage: TOTAL DAILY DOSE: 880 MG  UNIT DOSE: 220 MG
     Route: 048
     Dates: start: 20070901, end: 20080211
  2. EYE DROPS [Concomitant]
  3. ACTONEL [Concomitant]
  4. LOVASTATIN [Concomitant]
  5. VITAMIN [Concomitant]
     Dosage: TOTAL DAILY DOSE: 1 DF
  6. GLUCOSAMINE [Concomitant]
  7. MSN [Concomitant]

REACTIONS (1)
  - OEDEMA PERIPHERAL [None]
